FAERS Safety Report 19816447 (Version 1)
Quarter: 2021Q3

REPORT INFORMATION
  Report Type: Report from Study
  Country: US (occurrence: US)
  Receive Date: 20210910
  Receipt Date: 20210910
  Transmission Date: 20211014
  Serious: Yes (Hospitalization)
  Sender: FDA-Public Use
  Company Number: US-UCBSA-2021016005

PATIENT
  Age: 58 Year
  Sex: Female

DRUGS (3)
  1. LACOSAMIDE. [Suspect]
     Active Substance: LACOSAMIDE
     Indication: SEIZURE
     Dosage: 150 MILLIGRAM, 2X/DAY (BID)
     Route: 048
     Dates: start: 2006
  2. KEPPRA [Suspect]
     Active Substance: LEVETIRACETAM
     Indication: PRODUCT USED FOR UNKNOWN INDICATION
     Dosage: UNK
  3. ASPIRIN [ACETYLSALICYLIC ACID] [Concomitant]
     Active Substance: ASPIRIN
     Indication: AURA
     Dosage: UNK

REACTIONS (6)
  - Aura [Recovered/Resolved]
  - Therapy interrupted [Unknown]
  - Seizure [Recovered/Resolved]
  - Lower limb fracture [Not Recovered/Not Resolved]
  - Fall [Not Recovered/Not Resolved]
  - Product availability issue [Unknown]

NARRATIVE: CASE EVENT DATE: 2015
